FAERS Safety Report 9695941 (Version 1)
Quarter: 2013Q4

REPORT INFORMATION
  Report Type: Spontaneous
  Country: US (occurrence: US)
  Receive Date: 20131119
  Receipt Date: 20131119
  Transmission Date: 20140711
  Serious: No
  Sender: FDA-Public Use
  Company Number: US-BAYER-2013-141134

PATIENT
  Age: 77 Year
  Sex: Female

DRUGS (2)
  1. ALEVE CAPLET [Suspect]
     Indication: PAIN
     Dosage: 2 DF, PRN
     Route: 048
     Dates: start: 1994, end: 201309
  2. DIURETICS [Concomitant]

REACTIONS (4)
  - Joint swelling [Recovered/Resolved]
  - Local swelling [Recovered/Resolved]
  - Blood pressure increased [Recovered/Resolved]
  - Local swelling [Recovered/Resolved]
